FAERS Safety Report 10373718 (Version 1)
Quarter: 2014Q1

REPORT INFORMATION
  Report Type: Spontaneous
  Country: US (occurrence: None)
  Receive Date: 20140306
  Receipt Date: 20140306
  Transmission Date: 20141002
  Serious: Yes (Hospitalization)
  Sender: FDA-Public Use
  Company Number: 163-21880-13072037

PATIENT
  Age: 69 Year
  Sex: Female

DRUGS (19)
  1. REVLIMID (LENALIDOMIDE) (10 MILLIGRAM CAPSULES) [Suspect]
     Indication: MYELODYSPLASTIC SYNDROME
     Route: 048
     Dates: start: 200811
  2. COUMADIN (WARFARIN SODIUM) (UNKNOWN) [Concomitant]
  3. PREDNISONE (PREDNISONE) (UNKNOWN) [Concomitant]
  4. LYRICA (PREGABALIN) (UNKNOWN) [Concomitant]
  5. SYNTHROID (LEVOTHYROXINE SODIUM) (UNKNOWN) [Concomitant]
  6. LABETALOL HCL (LABETALOL HYDROCHLORIDE) (UNKNOWN) [Concomitant]
  7. CLONIDINE (CLONIDINE) (UNKNOWN) [Concomitant]
  8. KLOR-CON (POTASSIUM CHLORIDE) (UNKNOWN) [Concomitant]
  9. OXYCODONE-ACETAMINOPHEN (OXYCOCET) (UNKNOWN) [Concomitant]
  10. DIAZEPAM (DIAZEPAM) (UNKNOWN) (DIAZEPAM) [Concomitant]
  11. ALBUTEROL (SALBUTAMOL) (SOLUTION) [Concomitant]
  12. FIBERCON (POLYCARBOPHIL CALCIUM) (UNKNOWN) [Concomitant]
  13. TRAMADOL (TRAMADOL) (UNKNOWN) [Concomitant]
  14. VITAMIN B6 (PYRIDOXINE HYDROCHLORIDE) (UNKNOWN) [Concomitant]
  15. COLCRYS (COLCHICINE) (UNKNOWN) [Concomitant]
  16. CITRACAL + BONE DENSITY (CALCIUM CALTRATE) (TABLETS) [Concomitant]
  17. VITAMIN D3 (COLECALCIFEROL) (UNKNOWN) [Concomitant]
  18. MULTIVITAMINS (MULTIVITAMINS) (UNKNOWN) [Concomitant]
  19. LOSARTAN POTASSIUM (LOSARTAN POTASSIUM) (UNKNOWN) [Concomitant]

REACTIONS (1)
  - Thrombosis [None]
